FAERS Safety Report 7469610-1 (Version None)
Quarter: 2011Q2

REPORT INFORMATION
  Report Type: 
  Country: None (occurrence: None)
  Receive Date: 20110510
  Receipt Date: 20110504
  Transmission Date: 20111010
  Serious: Yes (Life-Threatening, Hospitalization)
  Sender: FDA-Public Use
  Company Number: US-B.I. PHARMACEUTICALS,INC./RIDGEFIELD-2011-BP-10403BP

PATIENT
  Sex: Male
  Weight: 77.11 kg

DRUGS (2)
  1. PRADAXA [Suspect]
     Dosage: 300 MG
     Dates: end: 20110404
  2. VANCOMYCIN [Concomitant]

REACTIONS (2)
  - HAEMATOMA [None]
  - RENAL FAILURE ACUTE [None]
